FAERS Safety Report 22522220 (Version 1)
Quarter: 2023Q2

REPORT INFORMATION
  Report Type: Spontaneous
  Country: US (occurrence: US)
  Receive Date: 20230605
  Receipt Date: 20230605
  Transmission Date: 20230722
  Serious: Yes (Hospitalization)
  Sender: FDA-Public Use
  Company Number: US-002147023-NVSC2023US125112

PATIENT
  Age: 14 Year
  Sex: Male

DRUGS (2)
  1. DABRAFENIB [Suspect]
     Active Substance: DABRAFENIB
     Indication: Anaplastic astrocytoma
     Dosage: UNK
     Route: 065
     Dates: start: 201809, end: 201909
  2. LOMUSTINE [Suspect]
     Active Substance: LOMUSTINE
     Indication: Anaplastic astrocytoma
     Dosage: UNK
     Route: 065
     Dates: start: 201809, end: 201909

REACTIONS (3)
  - Myelosuppression [Unknown]
  - Product use in unapproved indication [Unknown]
  - Product use issue [Unknown]

NARRATIVE: CASE EVENT DATE: 20190901
